FAERS Safety Report 8317785-4 (Version None)
Quarter: 2012Q2

REPORT INFORMATION
  Report Type: 
  Country: None (occurrence: None)
  Receive Date: 20120427
  Receipt Date: 20120423
  Transmission Date: 20120825
  Serious: Yes (Other)
  Sender: FDA-Public Use
  Company Number: US-PFIZER INC-2012100855

PATIENT
  Sex: Female
  Weight: 128 kg

DRUGS (14)
  1. TYLENOL W/ CODEINE NO. 3 [Suspect]
     Dosage: 1 MG, EVERY SIX HOURS
     Dates: start: 20120416, end: 20120418
  2. LEVOTHYROXINE [Concomitant]
     Indication: THYROID DISORDER
     Dosage: 200 UG, DAILY
  3. BENTYL [Concomitant]
     Indication: GASTROINTESTINAL PAIN
     Dosage: 20 MG, AS NEEDED
     Dates: start: 20090101
  4. ALPRAZOLAM [Concomitant]
     Indication: ANXIETY
     Dosage: 1 MG, AS NEEDED
  5. FUROSEMIDE [Suspect]
     Indication: DIURETIC THERAPY
     Dosage: 40 MG, DAILY
     Dates: start: 19860101
  6. TYLENOL W/ CODEINE NO. 3 [Suspect]
     Indication: BACK PAIN
     Dosage: UNK
     Dates: start: 20000101
  7. TYLENOL W/ CODEINE NO. 3 [Suspect]
     Indication: PAIN
     Dosage: UNK
     Dates: start: 20100101
  8. TYLENOL W/ CODEINE NO. 4 [Concomitant]
     Indication: FIBROMYALGIA
  9. LIPITOR [Suspect]
     Indication: BLOOD CHOLESTEROL INCREASED
     Dosage: 10 MG, DAILY
     Route: 048
     Dates: start: 20111001, end: 20120101
  10. LIPITOR [Suspect]
     Dosage: 20 MG, DAILY
     Route: 048
     Dates: start: 20120401
  11. ACETAZOLAMIDE [Concomitant]
     Indication: DIURETIC THERAPY
     Dosage: 250 MG, 2X/DAY
     Dates: start: 20111201
  12. TYLENOL W/ CODEINE NO. 4 [Concomitant]
     Indication: BACK PAIN
     Dosage: UNK,DAILY
     Dates: start: 20120301
  13. LYRICA [Suspect]
     Indication: FIBROMYALGIA
     Dosage: 75 MG, DAILY
     Route: 048
     Dates: start: 20110101
  14. DARVOCET [Concomitant]
     Dosage: UNK
     Dates: end: 20100101

REACTIONS (7)
  - GOUT [None]
  - PAIN [None]
  - NAUSEA [None]
  - FALL [None]
  - BLOOD CHOLESTEROL INCREASED [None]
  - FOOT FRACTURE [None]
  - ARTHRITIS [None]
